FAERS Safety Report 15037536 (Version 1)
Quarter: 2018Q2

REPORT INFORMATION
  Report Type: Spontaneous
  Country: US (occurrence: US)
  Receive Date: 20180620
  Receipt Date: 20180620
  Transmission Date: 20180711
  Serious: Yes (Hospitalization)
  Sender: FDA-Public Use
  Company Number: US-BEH-2018091686

PATIENT
  Age: 61 Year
  Sex: Female
  Weight: 62.59 kg

DRUGS (10)
  1. PRIVIGEN [Suspect]
     Active Substance: HUMAN IMMUNOGLOBULIN G
     Dosage: 1000 MG/KG, EVERY 8 WEEKS
     Route: 042
     Dates: start: 20160229
  2. GABAPENTIN. [Concomitant]
     Active Substance: GABAPENTIN
  3. MELOXICAM. [Concomitant]
     Active Substance: MELOXICAM
  4. CYANOCOBALAMIN. [Concomitant]
     Active Substance: CYANOCOBALAMIN
  5. PENICILLIN                         /00000901/ [Concomitant]
     Active Substance: PENICILLIN G
  6. DULOXETINE. [Concomitant]
     Active Substance: DULOXETINE
  7. PRIVIGEN [Suspect]
     Active Substance: HUMAN IMMUNOGLOBULIN G
     Indication: CHRONIC INFLAMMATORY DEMYELINATING POLYRADICULONEUROPATHY
     Dosage: UNK
     Route: 042
  8. PRAMIPEXOLE. [Concomitant]
     Active Substance: PRAMIPEXOLE
  9. HYDROCODONE BITARTRATE AND ACETAMINOPHEN [Concomitant]
     Active Substance: ACETAMINOPHEN\HYDROCODONE BITARTRATE
  10. LIDOCAINE. [Concomitant]
     Active Substance: LIDOCAINE

REACTIONS (3)
  - Asthenia [Unknown]
  - Blood potassium decreased [Unknown]
  - Fall [Unknown]

NARRATIVE: CASE EVENT DATE: 20180608
